FAERS Safety Report 22328480 (Version 5)
Quarter: 2023Q4

REPORT INFORMATION
  Report Type: Report from Study
  Country: CA (occurrence: CA)
  Receive Date: 20230517
  Receipt Date: 20231129
  Transmission Date: 20240109
  Serious: Yes (Other)
  Sender: FDA-Public Use
  Company Number: CA-JNJFOC-20230531751

PATIENT
  Age: 17 Year
  Sex: Female
  Weight: 45 kg

DRUGS (3)
  1. REMICADE [Suspect]
     Active Substance: INFLIXIMAB
     Indication: Crohn^s disease
     Dosage: EXPIRATION DATE: AUG-2025. PATIENT RECEIVED 4TH INFUSION OF 225 MG REMICADE DOSE ON 04-JUL-2023 AND
     Route: 042
     Dates: start: 20230331
  2. REMICADE [Suspect]
     Active Substance: INFLIXIMAB
     Dosage: PRESCRIPTION CHANGE DATE 18-JUL-2023?ON 31-OCT-2023, PATIENT RECEIVED 7TH INFLIXIMAB INFUSION AT 275
     Route: 042
     Dates: start: 2023
  3. REMICADE [Suspect]
     Active Substance: INFLIXIMAB
     Route: 042
     Dates: start: 20231123

REACTIONS (6)
  - Haematochezia [Not Recovered/Not Resolved]
  - Muscle spasms [Not Recovered/Not Resolved]
  - Decreased appetite [Not Recovered/Not Resolved]
  - Weight decreased [Not Recovered/Not Resolved]
  - Abdominal pain [Not Recovered/Not Resolved]
  - Off label use [Unknown]

NARRATIVE: CASE EVENT DATE: 20230101
